FAERS Safety Report 19202765 (Version 1)
Quarter: 2021Q2

REPORT INFORMATION
  Report Type: Spontaneous
  Country: BR (occurrence: BR)
  Receive Date: 20210502
  Receipt Date: 20210502
  Transmission Date: 20210717
  Serious: Yes (Death, Hospitalization, Other)
  Sender: FDA-Public Use
  Company Number: NVSC2021BR097576

PATIENT
  Age: 51 Year

DRUGS (2)
  1. DABRAFENIB [Suspect]
     Active Substance: DABRAFENIB
     Indication: PRODUCT USED FOR UNKNOWN INDICATION
     Dosage: 75 MG, BID (2 CAPSULES, TWICE A DAY)
     Route: 048
     Dates: start: 20160715, end: 20201105
  2. TRAMETINIB [Suspect]
     Active Substance: TRAMETINIB
     Indication: PRODUCT USED FOR UNKNOWN INDICATION
     Dosage: 2 MG, QD
     Route: 048
     Dates: start: 20160715, end: 20201105

REACTIONS (15)
  - Diabetes mellitus [Unknown]
  - Pancreatitis [Unknown]
  - Enteritis [Unknown]
  - Colitis [Unknown]
  - Death [Fatal]
  - Pyrexia [Unknown]
  - Lymphadenopathy [Recovering/Resolving]
  - Malignant melanoma [Unknown]
  - Photophobia [Unknown]
  - Pleural effusion [Unknown]
  - Retroperitoneal lymphadenopathy [Unknown]
  - Pneumoperitoneum [Unknown]
  - Intestinal haemorrhage [Unknown]
  - Ascites [Unknown]
  - Abdominal lymphadenopathy [Unknown]

NARRATIVE: CASE EVENT DATE: 20161206
